FAERS Safety Report 7066887-1 (Version None)
Quarter: 2010Q4

REPORT INFORMATION
  Report Type: 
  Country: None (occurrence: None)
  Receive Date: 20101028
  Receipt Date: 20100701
  Transmission Date: 20110411
  Serious: Yes (Death)
  Sender: FDA-Public Use
  Company Number: US-ASTRAZENECA-2010SE30742

PATIENT
  Sex: Female

DRUGS (7)
  1. SEROQUEL [Suspect]
     Route: 048
     Dates: start: 20041028
  2. MIDAZOLAM [Concomitant]
     Dates: start: 20041011
  3. CLONAZEPAM [Concomitant]
     Dates: start: 20041028
  4. CYMBALTA [Concomitant]
     Dates: start: 20041028
  5. TRAZODONE [Concomitant]
     Dates: start: 20041116
  6. TRILEPTAL [Concomitant]
     Dates: start: 20040726
  7. ZOFRAN [Concomitant]
     Dates: start: 20040727

REACTIONS (2)
  - DEATH [None]
  - DIABETES MELLITUS [None]
